FAERS Safety Report 8426118-4 (Version None)
Quarter: 2012Q2

REPORT INFORMATION
  Report Type: 
  Country: None (occurrence: None)
  Receive Date: 20120611
  Receipt Date: 20120605
  Transmission Date: 20120825
  Serious: Yes (Hospitalization)
  Sender: FDA-Public Use
  Company Number: US-BAYER-2011-105964

PATIENT
  Age: 37 Year
  Sex: Female
  Weight: 72.562 kg

DRUGS (16)
  1. AMITRIPTLINE HYDROCHLORIDE TAB [Concomitant]
  2. MOTRIN [Concomitant]
  3. AZITHROMYCIN [Concomitant]
     Dosage: 500 MG, UNK
     Dates: start: 20080822
  4. PROMETHAZINE DM [Concomitant]
     Dosage: UNK
     Dates: start: 20080820
  5. PREDNISONE TAB [Concomitant]
     Dosage: 10 MG, UNK
     Dates: start: 20080822
  6. ORPHENADRINE CITRATE [Concomitant]
     Dosage: 100 UNK, UNK
     Dates: start: 20080822
  7. NEURONTIN [Concomitant]
     Dosage: UNK
     Dates: start: 20080919
  8. PERCOCET [Concomitant]
     Dosage: UNK
     Dates: start: 20090920
  9. AMOXICILLIN [Concomitant]
     Dosage: 875 MG, UNK
     Dates: start: 20080820
  10. VALTREX [Concomitant]
     Indication: HERPES SIMPLEX
  11. NORFLEX [Concomitant]
     Dosage: 60 MG, UNK
     Dates: start: 20090920
  12. YAZ [Suspect]
     Dosage: UNK
     Dates: start: 20080801, end: 20080924
  13. VIGAMOX [Concomitant]
     Dosage: 0.5 %, UNK
     Route: 047
     Dates: start: 20080820
  14. DILAUDID [Concomitant]
     Dosage: 1 MG, UNK
     Dates: start: 20080920
  15. HYDROCODONE BITARTRATE AND ACETAMINOPHEN [Concomitant]
     Dosage: 5MG/500MG
     Dates: start: 20080710
  16. TRAMADOL HCL [Concomitant]
     Dosage: UNK
     Dates: start: 20080813

REACTIONS (6)
  - GENERAL PHYSICAL HEALTH DETERIORATION [None]
  - ANXIETY [None]
  - DEEP VEIN THROMBOSIS [None]
  - PAIN [None]
  - INJURY [None]
  - EMOTIONAL DISTRESS [None]
